FAERS Safety Report 8831085 (Version 1)
Quarter: 2012Q4

REPORT INFORMATION
  Report Type: 
  Country: IE (occurrence: IE)
  Receive Date: 20121009
  Receipt Date: 20121009
  Transmission Date: 20130627
  Serious: Yes (Other)
  Sender: FDA-Public Use
  Company Number: PHFR2012IE005289

PATIENT
  Sex: Male

DRUGS (1)
  1. CLOZARIL [Suspect]
     Indication: SCHIZOPHRENIA
     Dosage: 200 mg, QD
     Route: 048
     Dates: start: 20010701

REACTIONS (2)
  - Echocardiogram abnormal [Unknown]
  - Electrocardiogram abnormal [Unknown]
